FAERS Safety Report 9793178 (Version 1)
Quarter: 2014Q1

REPORT INFORMATION
  Report Type: Spontaneous
  Country: US (occurrence: US)
  Receive Date: 20140102
  Receipt Date: 20140102
  Transmission Date: 20141002
  Serious: Yes (Other)
  Sender: FDA-Public Use
  Company Number: US-PFIZER INC-2013373017

PATIENT
  Age: 63 Year
  Sex: Female
  Weight: 68.03 kg

DRUGS (2)
  1. REVATIO [Suspect]
     Indication: PULMONARY HYPERTENSION
     Dosage: 80 MG, 3X/DAY
     Dates: start: 2004
  2. FLOLAN [Concomitant]
     Indication: PULMONARY HYPERTENSION
     Dosage: UNK, DAILY

REACTIONS (2)
  - Upper limb fracture [Unknown]
  - Fall [Unknown]
